FAERS Safety Report 6781127-6 (Version None)
Quarter: 2010Q2

REPORT INFORMATION
  Report Type: 
  Country: None (occurrence: None)
  Receive Date: 20100621
  Receipt Date: 20100611
  Transmission Date: 20101027
  Serious: Yes (Hospitalization)
  Sender: FDA-Public Use
  Company Number: JP-BRISTOL-MYERS SQUIBB COMPANY-15109713

PATIENT
  Age: 35 Year
  Sex: Male

DRUGS (5)
  1. ABILIFY [Suspect]
     Indication: DEPRESSION
     Route: 048
  2. TRAZODONE HCL [Suspect]
     Route: 048
  3. ROHYPNOL [Suspect]
     Route: 065
  4. VEGETAMIN-B [Suspect]
     Dosage: TABS
     Route: 048
  5. ALCOHOL [Suspect]

REACTIONS (4)
  - LOSS OF CONSCIOUSNESS [None]
  - MULTIPLE DRUG OVERDOSE INTENTIONAL [None]
  - PNEUMONIA ASPIRATION [None]
  - RESPIRATORY FAILURE [None]
